FAERS Safety Report 9197525 (Version 1)
Quarter: 2013Q1

REPORT INFORMATION
  Report Type: Spontaneous
  Country: US (occurrence: US)
  Receive Date: 20130328
  Receipt Date: 20130328
  Transmission Date: 20140127
  Serious: No
  Sender: FDA-Public Use
  Company Number: US-GALDERMA-US-GDP-12415316

PATIENT
  Sex: Male

DRUGS (3)
  1. DOXYCYCLINE [Suspect]
  2. METROGEL [Suspect]
     Indication: ROSACEA
     Route: 061
     Dates: start: 201204, end: 201207
  3. ORACEA [Suspect]
     Indication: ROSACEA
     Route: 048
     Dates: start: 201202, end: 201207

REACTIONS (6)
  - Condition aggravated [Not Recovered/Not Resolved]
  - Skin irritation [Not Recovered/Not Resolved]
  - Skin burning sensation [Not Recovered/Not Resolved]
  - Drug ineffective [Not Recovered/Not Resolved]
  - Rosacea [None]
  - Economic problem [None]
